FAERS Safety Report 7626444-2 (Version None)
Quarter: 2011Q3

REPORT INFORMATION
  Report Type: 
  Country: None (occurrence: None)
  Receive Date: 20110721
  Receipt Date: 20110715
  Transmission Date: 20111222
  Serious: Yes (Other)
  Sender: FDA-Public Use
  Company Number: AR-PFIZER INC-2011162204

PATIENT
  Age: 43 Year
  Sex: Female

DRUGS (1)
  1. SUNITINIB MALATE [Suspect]
     Indication: RENAL CELL CARCINOMA
     Dosage: 37.5 MG, 1X/DAY
     Dates: start: 20080901

REACTIONS (9)
  - HYPERTENSION [None]
  - NECK PAIN [None]
  - HYPOTHYROIDISM [None]
  - HEADACHE [None]
  - THYROIDITIS [None]
  - HYPERTHYROIDISM [None]
  - NAUSEA [None]
  - VOMITING [None]
  - PALMAR-PLANTAR ERYTHRODYSAESTHESIA SYNDROME [None]
